FAERS Safety Report 25400810 (Version 1)
Quarter: 2025Q2

REPORT INFORMATION
  Report Type: Spontaneous
  Country: US (occurrence: US)
  Receive Date: 20250605
  Receipt Date: 20250605
  Transmission Date: 20250717
  Serious: Yes (Other)
  Sender: SPECGX
  Company Number: US-SPECGX-T202501026

PATIENT
  Sex: Female

DRUGS (1)
  1. FENTANYL TRANSDERMAL SYSTEM [Suspect]
     Active Substance: FENTANYL
     Indication: Product used for unknown indication
     Route: 062

REACTIONS (3)
  - Infection [Unknown]
  - Pruritus [Unknown]
  - Hypersensitivity [Unknown]
